FAERS Safety Report 10029540 (Version 1)
Quarter: 2014Q1

REPORT INFORMATION
  Report Type: Spontaneous
  Country: US (occurrence: None)
  Receive Date: 20140320
  Receipt Date: 20140320
  Transmission Date: 20141002
  Serious: Yes (Hospitalization)
  Sender: FDA-Public Use
  Company Number: None

PATIENT
  Age: 46 Year
  Sex: Female
  Weight: 59.42 kg

DRUGS (3)
  1. IBUPROFEN [Suspect]
     Indication: PAIN
     Dosage: 2 PILLS
     Route: 048
     Dates: start: 20140306, end: 20140306
  2. IBUPROFEN [Suspect]
     Indication: PAIN
     Dosage: 2 PILLS
     Route: 048
     Dates: start: 20140306, end: 20140306
  3. IBUPROFEN [Suspect]
     Indication: PYREXIA
     Dosage: 2 PILLS
     Route: 048
     Dates: start: 20140306, end: 20140306

REACTIONS (3)
  - Hypersensitivity [None]
  - Product quality issue [None]
  - Product quality issue [None]
